FAERS Safety Report 7480845-4 (Version None)
Quarter: 2011Q2

REPORT INFORMATION
  Report Type: 
  Country: None (occurrence: None)
  Receive Date: 20110512
  Receipt Date: 20110512
  Transmission Date: 20111010
  Serious: Yes (Other)
  Sender: FDA-Public Use
  Company Number: None

PATIENT
  Age: 78 Year
  Sex: Female

DRUGS (3)
  1. AROMASIN [Suspect]
     Indication: BREAST CANCER
     Dates: start: 20090309, end: 20110408
  2. AROMASIN [Suspect]
     Indication: SURGERY
     Dates: start: 20090309, end: 20110408
  3. AROMASIN [Suspect]
     Indication: NEOPLASM MALIGNANT
     Dates: start: 20090309, end: 20110408

REACTIONS (5)
  - OEDEMA PERIPHERAL [None]
  - ARTHRALGIA [None]
  - SWELLING [None]
  - ARTHROPATHY [None]
  - TRIGGER FINGER [None]
